FAERS Safety Report 9565292 (Version 2)
Quarter: 2013Q4

REPORT INFORMATION
  Report Type: Spontaneous
  Country: US (occurrence: US)
  Receive Date: 20130930
  Receipt Date: 20131022
  Transmission Date: 20140711
  Serious: No
  Sender: FDA-Public Use
  Company Number: US-TEVA-435001USA

PATIENT
  Age: 32 Year
  Sex: Female
  Weight: 76.27 kg

DRUGS (1)
  1. PARAGARD 380A [Suspect]
     Indication: CONTRACEPTION
     Route: 015
     Dates: start: 20130522, end: 20130906

REACTIONS (6)
  - Metrorrhagia [Recovered/Resolved]
  - Metrorrhagia [Unknown]
  - Menstruation irregular [Unknown]
  - Nausea [Unknown]
  - Anxiety [Unknown]
  - Weight increased [Unknown]
